FAERS Safety Report 8196561-X (Version None)
Quarter: 2012Q1

REPORT INFORMATION
  Report Type: 
  Country: None (occurrence: None)
  Receive Date: 20120229
  Receipt Date: 20111102
  Transmission Date: 20120608
  Serious: No
  Sender: FDA-Public Use
  Company Number: US-2011-10771

PATIENT
  Sex: Male

DRUGS (1)
  1. SAMSCA [Suspect]
     Indication: BLOOD SODIUM DECREASED
     Dates: start: 20110701, end: 20111001

REACTIONS (1)
  - MOOD SWINGS [None]
